FAERS Safety Report 13692268 (Version 1)
Quarter: 2017Q2

REPORT INFORMATION
  Report Type: Spontaneous
  Country: US (occurrence: US)
  Receive Date: 20170627
  Receipt Date: 20170627
  Transmission Date: 20170830
  Serious: No
  Sender: FDA-Public Use
  Company Number: US-ASTRAZENECA-2017SE65141

PATIENT
  Age: 625 Month
  Sex: Female
  Weight: 76.7 kg

DRUGS (2)
  1. METFORMIN [Concomitant]
     Active Substance: METFORMIN HYDROCHLORIDE
     Indication: TYPE 2 DIABETES MELLITUS
     Route: 048
  2. BYDUREON [Suspect]
     Active Substance: EXENATIDE
     Indication: BLOOD GLUCOSE ABNORMAL
     Route: 058
     Dates: start: 201610

REACTIONS (3)
  - Weight decreased [Recovered/Resolved]
  - Dysgeusia [Not Recovered/Not Resolved]
  - Glycosylated haemoglobin decreased [Unknown]

NARRATIVE: CASE EVENT DATE: 201610
